FAERS Safety Report 13286740 (Version 2)
Quarter: 2017Q1

REPORT INFORMATION
  Report Type: Spontaneous
  Country: US (occurrence: US)
  Receive Date: 20170302
  Receipt Date: 20170324
  Transmission Date: 20170428
  Serious: Yes (Other)
  Sender: FDA-Public Use
  Company Number: US-SAOL THERAPEUTICS-2017SAO00390

PATIENT
  Age: 21 Year
  Sex: Male
  Weight: 40.55 kg

DRUGS (9)
  1. RISPERDAL [Concomitant]
     Active Substance: RISPERIDONE
     Dosage: 0.5 MG, 2X/DAY
     Route: 048
  2. NORCO [Concomitant]
     Active Substance: ACETAMINOPHEN\HYDROCODONE BITARTRATE
     Dosage: 1 TABLETS, EVERY 48 HOURS
     Route: 048
  3. MIRALAX [Concomitant]
     Active Substance: POLYETHYLENE GLYCOL 3350
     Dosage: 17 G, 2X/DAY
  4. PRINIVIL [Concomitant]
     Active Substance: LISINOPRIL
     Dosage: 10 MG, 1X/DAY
     Route: 048
  5. LIORESAL [Suspect]
     Active Substance: BACLOFEN
     Dosage: 200 ?G, \DAY
     Route: 037
  6. PEPCID SUSPENSION [Concomitant]
     Dosage: 40 MG, 2X/DAY
     Route: 048
  7. DIPHENHYDRAMINE HCL LIQUID [Concomitant]
     Dosage: 50 MG, 1X/DAY
     Route: 048
  8. LIORESAL [Suspect]
     Active Substance: BACLOFEN
     Indication: CEREBRAL PALSY
     Dosage: 500 ?G, \DAY
     Route: 037
  9. CATAPRES [Concomitant]
     Active Substance: CLONIDINE HYDROCHLORIDE
     Dosage: 0.1 MG, 1X/DAY
     Route: 048

REACTIONS (8)
  - Implant site infection [Recovered/Resolved]
  - Muscle spasticity [Recovering/Resolving]
  - Device infusion issue [Unknown]
  - Wound dehiscence [Recovered/Resolved]
  - Muscle contracture [Recovering/Resolving]
  - Pain [Recovering/Resolving]
  - Cholecystectomy [Unknown]
  - Arthralgia [Recovering/Resolving]

NARRATIVE: CASE EVENT DATE: 2015
